FAERS Safety Report 6371435-5 (Version None)
Quarter: 2009Q3

REPORT INFORMATION
  Report Type: 
  Country: None (occurrence: None)
  Receive Date: 20090923
  Receipt Date: 20080104
  Transmission Date: 20100115
  Serious: Yes (Other)
  Sender: FDA-Public Use
  Company Number: US-ASTRAZENECA-2007UW13902

PATIENT
  Age: 13993 Day
  Sex: Female

DRUGS (9)
  1. SEROQUEL [Suspect]
     Indication: SLEEP DISORDER
     Dates: start: 20010101, end: 20040707
  2. SEROQUEL [Suspect]
     Route: 048
     Dates: start: 20040819
  3. NEXIUM [Concomitant]
     Dates: start: 20070330
  4. CELEBREX [Concomitant]
     Route: 048
     Dates: start: 20031218
  5. BUPROPION HCL [Concomitant]
     Route: 048
     Dates: start: 20040101
  6. TRILEPTAL [Concomitant]
     Route: 048
     Dates: start: 20040101
  7. SKELAXIN [Concomitant]
     Route: 048
     Dates: start: 20040819
  8. LAMICTAL [Concomitant]
     Route: 048
     Dates: start: 20040819
  9. FLEXERIL [Concomitant]
     Route: 048
     Dates: start: 20040820

REACTIONS (1)
  - PANCREATITIS ACUTE [None]
